FAERS Safety Report 5473973-6 (Version None)
Quarter: 2007Q3

REPORT INFORMATION
  Report Type: 
  Country: None (occurrence: None)
  Receive Date: 20070904
  Receipt Date: 20061208
  Transmission Date: 20080115
  Serious: Yes (Other)
  Sender: FDA-Public Use
  Company Number: 2006116335

PATIENT
  Sex: Male

DRUGS (8)
  1. CAVERJECT [Suspect]
     Indication: ERECTILE DYSFUNCTION
     Dates: start: 19950101
  2. VIAGRA [Suspect]
     Indication: ERECTILE DYSFUNCTION
  3. VYTORIN [Concomitant]
  4. PREVACID [Concomitant]
  5. SPIRONOLACTONE [Concomitant]
  6. WELLBUTRIN [Concomitant]
  7. TRAZODONE HCL [Concomitant]
  8. POTASSIUM CHLORIDE [Concomitant]

REACTIONS (5)
  - DEPRESSION [None]
  - DRUG EFFECT DECREASED [None]
  - ERECTION INCREASED [None]
  - FRUSTRATION [None]
  - PENILE PAIN [None]
